FAERS Safety Report 6293300 (Version 4)
Quarter: 2017Q3

REPORT INFORMATION
  Report Type: Spontaneous
  Country: US (occurrence: US)
  Receive Date: 20061109
  Receipt Date: 20170925
  Transmission Date: 20171128
  Serious: Yes (Hospitalization, Other)
  Sender: FDA-Public Use
  Company Number: US-PFIZER INC-2006133889

PATIENT
  Sex: Female

DRUGS (2)
  1. CELEBREX [Suspect]
     Active Substance: CELECOXIB
     Indication: OSTEOARTHRITIS
     Dosage: 100 MG, 2X/DAY
     Route: 048
     Dates: start: 20000907, end: 20001007
  2. VIOXX [Suspect]
     Active Substance: ROFECOXIB
     Dosage: UNK
     Route: 048
     Dates: start: 19991210, end: 20001223

REACTIONS (2)
  - Ischaemic stroke [Unknown]
  - Anxiety [Unknown]

NARRATIVE: CASE EVENT DATE: 20001223
